FAERS Safety Report 4505157-X (Version None)
Quarter: 2004Q4

REPORT INFORMATION
  Report Type: 
  Country: None (occurrence: None)
  Receive Date: 20041117
  Receipt Date: 20041117
  Transmission Date: 20050328
  Serious: Yes (Hospitalization)
  Sender: FDA-Public Use
  Company Number: None

PATIENT
  Age: 78 Year
  Sex: Male

DRUGS (4)
  1. WARFARIN [Suspect]
     Indication: DEEP VEIN THROMBOSIS
     Dosage: 5 MG QD
     Dates: start: 20040701
  2. LISINOPRIL [Concomitant]
  3. LORAZEPAM [Concomitant]
  4. DARBEPOETIN [Concomitant]

REACTIONS (1)
  - NO ADVERSE EFFECT [None]
